FAERS Safety Report 5954032-2 (Version None)
Quarter: 2008Q4

REPORT INFORMATION
  Report Type: 
  Country: None (occurrence: None)
  Receive Date: 20081114
  Receipt Date: 20081107
  Transmission Date: 20090506
  Serious: Yes (Death, Hospitalization)
  Sender: FDA-Public Use
  Company Number: IT-PFIZER INC-2008094618

PATIENT
  Sex: Female

DRUGS (11)
  1. IRINOTECAN HCL [Suspect]
     Route: 042
     Dates: start: 20080716, end: 20080910
  2. BEVACIZUMAB [Suspect]
     Route: 042
     Dates: start: 20080716, end: 20080910
  3. FOLINIC ACID [Suspect]
     Route: 042
     Dates: start: 20080716, end: 20080911
  4. FLUOROURACIL [Suspect]
     Route: 042
     Dates: start: 20080716, end: 20080912
  5. FLUOROURACIL [Suspect]
     Dosage: TEXT:620 MG BOLUS
     Route: 042
     Dates: start: 20080716, end: 20080911
  6. ARVENUM [Concomitant]
     Route: 048
     Dates: start: 19720101
  7. KCL-RETARD [Concomitant]
     Route: 048
     Dates: start: 20080709
  8. LOPERAMIDE HCL [Concomitant]
     Route: 048
     Dates: start: 20080917
  9. TRANEX [Concomitant]
     Route: 042
     Dates: start: 20081008
  10. CLEXANE [Concomitant]
     Route: 058
     Dates: start: 20081011, end: 20081011
  11. CLIVARINE [Concomitant]
     Route: 058
     Dates: start: 20081008

REACTIONS (8)
  - ANAEMIA [None]
  - ASTHENIA [None]
  - DEHYDRATION [None]
  - DIARRHOEA [None]
  - LEUKOPENIA [None]
  - MELAENA [None]
  - NEUTROPENIA [None]
  - THROMBOCYTOPENIA [None]
